FAERS Safety Report 17057141 (Version 2)
Quarter: 2019Q4

REPORT INFORMATION
  Report Type: Report from Study
  Country: LU (occurrence: LU)
  Receive Date: 20191121
  Receipt Date: 20191127
  Transmission Date: 20200122
  Serious: Yes (Death, Hospitalization)
  Sender: FDA-Public Use
  Company Number: NVSC2019LU039805

PATIENT
  Age: 77 Year
  Sex: Female
  Weight: 62 kg

DRUGS (5)
  1. BYL719 [Suspect]
     Active Substance: ALPELISIB
     Indication: BREAST CANCER
     Dosage: 200 MG
     Route: 048
     Dates: start: 20190629
  2. FASLODEX [Concomitant]
     Active Substance: FULVESTRANT
     Indication: BREAST CANCER
     Dosage: 500 MG
     Route: 065
     Dates: start: 20190617
  3. CONCOR [Concomitant]
     Active Substance: BISOPROLOL FUMARATE
     Indication: HYPERTENSION
     Dosage: 5 OT, BID
     Route: 065
     Dates: start: 201607
  4. XARELTO [Concomitant]
     Active Substance: RIVAROXABAN
     Indication: ATRIAL FIBRILLATION
     Dosage: 15 MG
     Route: 065
     Dates: start: 201607
  5. BYL719 [Suspect]
     Active Substance: ALPELISIB
     Dosage: 100 MG, QD
     Route: 048
     Dates: start: 20190726, end: 20190913

REACTIONS (10)
  - Nausea [Fatal]
  - Breast cancer [Fatal]
  - Diarrhoea [Recovered/Resolved]
  - Malignant neoplasm progression [Fatal]
  - Vomiting [Fatal]
  - Decreased appetite [Recovered/Resolved]
  - Fatigue [Recovered/Resolved]
  - Cachexia [Fatal]
  - Blood creatinine increased [Recovering/Resolving]
  - Pain [Fatal]

NARRATIVE: CASE EVENT DATE: 20190707
